FAERS Safety Report 4921109-X (Version None)
Quarter: 2006Q1

REPORT INFORMATION
  Report Type: 
  Country: None (occurrence: None)
  Receive Date: 20060223
  Receipt Date: 20051020
  Transmission Date: 20060701
  Serious: Yes (Other)
  Sender: FDA-Public Use
  Company Number: US-MERCK-0510USA08371

PATIENT
  Age: 48 Year
  Sex: Male
  Weight: 100 kg

DRUGS (6)
  1. VIOXX [Suspect]
     Indication: ARTHRITIS
     Route: 048
     Dates: start: 20040101, end: 20040901
  2. VIOXX [Suspect]
     Route: 048
     Dates: start: 20010320
  3. VIOXX [Suspect]
     Route: 048
     Dates: start: 20011002
  4. VIOXX [Suspect]
     Indication: ARTHRALGIA
     Route: 048
     Dates: start: 20040101, end: 20040901
  5. VIOXX [Suspect]
     Route: 048
     Dates: start: 20010320
  6. VIOXX [Suspect]
     Route: 048
     Dates: start: 20011002

REACTIONS (4)
  - ABSCESS LIMB [None]
  - FURUNCLE [None]
  - HYPERTENSION [None]
  - MYOCARDIAL INFARCTION [None]
